FAERS Safety Report 8979559 (Version 1)
Quarter: 2012Q4

REPORT INFORMATION
  Report Type: 
  Country: DE (occurrence: DE)
  Receive Date: 20121221
  Receipt Date: 20121221
  Transmission Date: 20130627
  Serious: Yes (Death)
  Sender: FDA-Public Use
  Company Number: DE-TEVA-375647GER

PATIENT
  Age: 87 Year
  Sex: Male

DRUGS (11)
  1. CITALOPRAM [Suspect]
     Indication: PANIC DISORDER
     Dosage: 20 Milligram Daily;
     Route: 065
  2. ASPIRIN [Suspect]
     Indication: MYOCARDIAL INFARCTION
     Dosage: 100 Milligram Daily;
     Route: 065
  3. OLANZAPINE [Concomitant]
     Dosage: 5 Milligram Daily;
     Route: 065
  4. ZOPICLONE [Concomitant]
     Dosage: 7.5 Milligram Daily;
     Route: 065
  5. NITRENDIPINE [Concomitant]
     Dosage: 20 Milligram Daily;
     Route: 065
  6. BISOPROLOL [Concomitant]
     Dosage: 5 Milligram Daily;
     Route: 065
  7. LISINOPRIL, HYDROCHLOROTHIAZIDE [Concomitant]
     Dosage: 1 Dosage forms Daily; Lisinopril 20 mg and hydrochlorothiazide 12.5 mg
     Route: 065
  8. BUPRENORPHINE [Concomitant]
     Dosage: 1 Dosage forms Daily; 20 microg/hr
     Route: 065
  9. VITAMIN B12 ANALOGUES [Concomitant]
     Route: 065
  10. PREGABALIN [Concomitant]
     Route: 065
  11. LACTULOSE [Concomitant]
     Route: 065

REACTIONS (2)
  - Myocardial infarction [Fatal]
  - Gastrointestinal haemorrhage [Not Recovered/Not Resolved]
